FAERS Safety Report 19386389 (Version 1)
Quarter: 2021Q2

REPORT INFORMATION
  Report Type: Spontaneous
  Country: US (occurrence: US)
  Receive Date: 20210607
  Receipt Date: 20210607
  Transmission Date: 20210717
  Serious: No
  Sender: FDA-Public Use
  Company Number: None

PATIENT
  Age: 42 Year
  Sex: Female

DRUGS (1)
  1. HUMIRA [Suspect]
     Active Substance: ADALIMUMAB
     Indication: RHEUMATOID ARTHRITIS
     Dosage: OTHER FREQUENCY:EVERY 14 DAYS;?
     Route: 058
     Dates: start: 202103

REACTIONS (3)
  - Pain in extremity [None]
  - Product use issue [None]
  - Peripheral swelling [None]

NARRATIVE: CASE EVENT DATE: 20210524
